FAERS Safety Report 8345258-1 (Version None)
Quarter: 2012Q2

REPORT INFORMATION
  Report Type: 
  Country: None (occurrence: None)
  Receive Date: 20120504
  Receipt Date: 20120423
  Transmission Date: 20120825
  Serious: Yes (Hospitalization)
  Sender: FDA-Public Use
  Company Number: 2012SA028461

PATIENT
  Age: 50 Year
  Sex: Female

DRUGS (1)
  1. MENTHOL [Suspect]
     Indication: NECK PAIN
     Dosage: TOPICAL
     Route: 061
     Dates: start: 20100905

REACTIONS (6)
  - CHEMICAL INJURY [None]
  - APPLICATION SITE DISCOMFORT [None]
  - APPLICATION SITE PRURITUS [None]
  - APPLICATION SITE WARMTH [None]
  - HYPERHIDROSIS [None]
  - NERVE INJURY [None]
